FAERS Safety Report 10459766 (Version 6)
Quarter: 2015Q2

REPORT INFORMATION
  Report Type: Spontaneous
  Country: JP (occurrence: JP)
  Receive Date: 20140917
  Receipt Date: 20150623
  Transmission Date: 20150821
  Serious: Yes (Death, Life-Threatening, Hospitalization, Other)
  Sender: FDA-Public Use
  Company Number: JP-GLAXOSMITHKLINE-B1031080A

PATIENT
  Age: 43 Year
  Sex: Female
  Weight: 58 kg

DRUGS (6)
  1. LAMOTRIGINE. [Suspect]
     Active Substance: LAMOTRIGINE
     Indication: SEIZURE
  2. DEPAKENE [Concomitant]
     Active Substance: VALPROIC ACID
     Indication: CONVULSION PROPHYLAXIS
     Dosage: 800 MG, 1D
  3. MENILET (JAPAN) [Concomitant]
  4. LAMOTRIGINE. [Suspect]
     Active Substance: LAMOTRIGINE
     Indication: EPILEPSY
     Dosage: 100 MG, BID
     Route: 048
     Dates: start: 20140820, end: 20140831
  5. MYSTAN [Concomitant]
     Active Substance: CLOBAZAM
     Indication: SEIZURE
     Dosage: UNK
  6. MAGNESIUM OXIDE. [Concomitant]
     Active Substance: MAGNESIUM OXIDE

REACTIONS (17)
  - Gait disturbance [Unknown]
  - Fall [Unknown]
  - Flushing [Unknown]
  - Circulatory collapse [Fatal]
  - Alanine aminotransferase increased [Unknown]
  - Toxic epidermal necrolysis [Fatal]
  - Eczema [Unknown]
  - Aspartate aminotransferase increased [Unknown]
  - Stevens-Johnson syndrome [Fatal]
  - Platelet count decreased [Unknown]
  - Respiratory failure [Unknown]
  - Erythema [Unknown]
  - White blood cell count decreased [Unknown]
  - Drug eruption [Unknown]
  - Overdose [Unknown]
  - Sepsis [Unknown]
  - Pneumonia [Unknown]

NARRATIVE: CASE EVENT DATE: 20140829
